FAERS Safety Report 9773137 (Version 2)
Quarter: 2014Q1

REPORT INFORMATION
  Report Type: Spontaneous
  Country: US (occurrence: US)
  Receive Date: 20131219
  Receipt Date: 20140214
  Transmission Date: 20141002
  Serious: No
  Sender: FDA-Public Use
  Company Number: US-GILEAD-2013-0090295

PATIENT
  Sex: Female

DRUGS (3)
  1. LETAIRIS [Suspect]
     Indication: PULMONARY ARTERIAL HYPERTENSION
     Dosage: 10 MG, QD
     Route: 048
  2. LETAIRIS [Suspect]
     Dosage: 5 MG, QD
     Route: 048
  3. LETAIRIS [Suspect]
     Dosage: 5 MG, QD
     Route: 048

REACTIONS (2)
  - Sinusitis [Unknown]
  - Sinus congestion [Unknown]
